FAERS Safety Report 8203798-X (Version None)
Quarter: 2012Q1

REPORT INFORMATION
  Report Type: 
  Country: None (occurrence: None)
  Receive Date: 20120313
  Receipt Date: 20120305
  Transmission Date: 20120608
  Serious: Yes (Death)
  Sender: FDA-Public Use
  Company Number: MX-SANOFI-AVENTIS-2012SA015080

PATIENT
  Age: 67 Year
  Sex: Female

DRUGS (3)
  1. ALL OTHER THERAPEUTIC PRODUCTS [Concomitant]
     Indication: CARDIAC FAILURE
     Dates: end: 20110716
  2. LANTUS [Suspect]
     Indication: TYPE 2 DIABETES MELLITUS
     Route: 058
     Dates: start: 20110701, end: 20110716
  3. ANTIHYPERTENSIVES [Concomitant]
     Dates: end: 20110716

REACTIONS (2)
  - CARDIAC FAILURE [None]
  - MALAISE [None]
